FAERS Safety Report 7046826-X (Version None)
Quarter: 2010Q4

REPORT INFORMATION
  Report Type: 
  Country: None (occurrence: None)
  Receive Date: 20101015
  Receipt Date: 20101004
  Transmission Date: 20110411
  Serious: Yes (Other)
  Sender: FDA-Public Use
  Company Number: GR-JNJFOC-20101001062

PATIENT
  Age: 64 Year
  Sex: Male

DRUGS (3)
  1. REMICADE [Suspect]
     Indication: RHEUMATOID ARTHRITIS
     Dosage: 3RD INFLIXIMAB INFUSION
     Route: 042
  2. REMICADE [Suspect]
     Dosage: 4TH INFLIXIMAB INFUSION
     Route: 042
  3. REMICADE [Suspect]
     Dosage: 1ST INFLIXIMAB INFUSION
     Route: 042

REACTIONS (4)
  - ACTIVITIES OF DAILY LIVING IMPAIRED [None]
  - INFUSION RELATED REACTION [None]
  - MOBILITY DECREASED [None]
  - PAIN IN EXTREMITY [None]
